FAERS Safety Report 8887459 (Version 1)
Quarter: 2012Q4

REPORT INFORMATION
  Report Type: Spontaneous
  Country: US (occurrence: None)
  Receive Date: 20121101
  Receipt Date: 20121101
  Transmission Date: 20130627
  Serious: No
  Sender: FDA-Public Use
  Company Number: None

PATIENT
  Sex: Male
  Weight: 108.86 kg

DRUGS (3)
  1. ALPRAZOLAM [Suspect]
     Indication: ANXIETY
     Dosage: one tablet, daily, orally
     Route: 048
     Dates: start: 20120919
  2. ALPRAZOLAM [Suspect]
     Indication: PANIC DISORDER
     Dosage: one tablet, daily, orally
     Route: 048
     Dates: start: 20120919
  3. ALPRAZOLAM [Suspect]
     Dosage: one tablet, daily, orally
     Route: 048
     Dates: start: 20120919

REACTIONS (4)
  - Pain [None]
  - Abdominal distension [None]
  - Flatulence [None]
  - Headache [None]
